FAERS Safety Report 13638151 (Version 2)
Quarter: 2017Q3

REPORT INFORMATION
  Report Type: Report from Study
  Country: AU (occurrence: AU)
  Receive Date: 20170609
  Receipt Date: 20170907
  Transmission Date: 20171127
  Serious: Yes (Hospitalization)
  Sender: FDA-Public Use
  Company Number: AU-ASTRAZENECA-2017SE47960

PATIENT
  Age: 20792 Day
  Sex: Female
  Weight: 74 kg

DRUGS (8)
  1. KLIOVANCE [Concomitant]
     Active Substance: ESTRADIOL\NORETHINDRONE ACETATE
     Indication: HORMONE REPLACEMENT THERAPY
     Route: 048
     Dates: start: 20170320
  2. PARACETAMOL [Concomitant]
     Active Substance: ACETAMINOPHEN
     Indication: PAIN
     Dosage: 1.0G AS REQUIRED
     Route: 048
     Dates: start: 2010
  3. ESOMEPRAZOLE [Concomitant]
     Active Substance: ESOMEPRAZOLE
     Route: 048
     Dates: start: 2015
  4. PEMETREXED. [Suspect]
     Active Substance: PEMETREXED
     Indication: MESOTHELIOMA
     Dosage: 900 MG
     Route: 042
     Dates: start: 20170330
  5. DIAZEPAM. [Concomitant]
     Active Substance: DIAZEPAM
     Dosage: 5.0MG AS REQUIRED
     Route: 048
     Dates: start: 20170210
  6. MEDI4736 [Suspect]
     Active Substance: DURVALUMAB
     Indication: MESOTHELIOMA
     Route: 042
     Dates: start: 20170330
  7. FOLIC ACID. [Concomitant]
     Active Substance: FOLIC ACID
     Indication: PROPHYLAXIS
     Route: 048
     Dates: start: 20170317
  8. CISPLATIN. [Suspect]
     Active Substance: CISPLATIN
     Indication: MESOTHELIOMA
     Dosage: 134 MG
     Route: 042
     Dates: start: 20170330

REACTIONS (1)
  - Gastritis [Recovered/Resolved]

NARRATIVE: CASE EVENT DATE: 20170406
